FAERS Safety Report 6769226-6 (Version None)
Quarter: 2010Q2

REPORT INFORMATION
  Report Type: 
  Country: None (occurrence: None)
  Receive Date: 20100615
  Receipt Date: 20100601
  Transmission Date: 20101027
  Serious: Yes (Disabling, Other)
  Sender: FDA-Public Use
  Company Number: GB-BAYER-201014439GPV

PATIENT
  Age: 76 Year
  Sex: Female

DRUGS (4)
  1. FLUDARA [Suspect]
     Indication: CHRONIC LYMPHOCYTIC LEUKAEMIA
     Route: 048
     Dates: start: 20080401
  2. FLUDARA [Suspect]
     Route: 048
     Dates: start: 20080501
  3. FLUDARA [Suspect]
     Route: 048
     Dates: start: 20090301
  4. FLUDARA [Suspect]
     Route: 048
     Dates: start: 20090401, end: 20090404

REACTIONS (4)
  - ASTHENIA [None]
  - BALANCE DISORDER [None]
  - DROP ATTACKS [None]
  - VESTIBULAR DISORDER [None]
